FAERS Safety Report 20791607 (Version 3)
Quarter: 2022Q4

REPORT INFORMATION
  Report Type: Report from Study
  Country: US (occurrence: US)
  Receive Date: 20220505
  Receipt Date: 20221214
  Transmission Date: 20230113
  Serious: Yes (Life-Threatening, Hospitalization, Other)
  Sender: FDA-Public Use
  Company Number: US-TAKEDA-2022TUS027831

PATIENT
  Age: 83 Year
  Sex: Female
  Weight: 55 kg

DRUGS (6)
  1. MESALAMINE [Suspect]
     Active Substance: MESALAMINE
     Indication: Colitis ulcerative
     Dosage: 1.2 GRAM, BID
     Route: 048
     Dates: end: 20220325
  2. MESALAMINE [Suspect]
     Active Substance: MESALAMINE
     Dosage: 1.2 GRAM, BID
     Route: 048
     Dates: start: 20210426, end: 20220310
  3. ZYRTEC [Concomitant]
     Active Substance: CETIRIZINE HYDROCHLORIDE
     Indication: Rash pruritic
     Dosage: UNK, QD
  4. CLARITIN [Concomitant]
     Active Substance: LORATADINE
  5. PROBIOTICS NOS [Concomitant]
     Active Substance: PROBIOTICS NOS
  6. PREDNISONE [Concomitant]
     Active Substance: PREDNISONE
     Indication: Pulmonary toxicity
     Dosage: UNK
     Route: 065

REACTIONS (16)
  - Organising pneumonia [Recovered/Resolved]
  - Pulmonary haemorrhage [Unknown]
  - Joint swelling [Unknown]
  - Pulmonary toxicity [Recovering/Resolving]
  - Haematochezia [Recovered/Resolved]
  - Autoimmune disorder [Unknown]
  - Macular degeneration [Unknown]
  - Dermatitis contact [Unknown]
  - Multiple allergies [Unknown]
  - Blood urine present [Unknown]
  - Mucous stools [Recovered/Resolved]
  - Defaecation urgency [Unknown]
  - Weight decreased [Unknown]
  - Decreased appetite [Unknown]
  - Anxiety [Unknown]
  - Flatulence [Unknown]

NARRATIVE: CASE EVENT DATE: 20220217
